FAERS Safety Report 8311535-3 (Version None)
Quarter: 2012Q2

REPORT INFORMATION
  Report Type: 
  Country: None (occurrence: None)
  Receive Date: 20120425
  Receipt Date: 20120417
  Transmission Date: 20120825
  Serious: Yes (Other)
  Sender: FDA-Public Use
  Company Number: GB-JNJFOC-20120408744

PATIENT

DRUGS (5)
  1. PREDNISONE [Suspect]
     Indication: B-CELL LYMPHOMA
     Route: 065
  2. OBINUTUZUMAB [Suspect]
     Indication: B-CELL LYMPHOMA
     Route: 065
  3. DOXORUBICIN HCL [Suspect]
     Indication: B-CELL LYMPHOMA
     Route: 042
  4. CYCLOPHOSPHAMIDE [Suspect]
     Indication: B-CELL LYMPHOMA
     Route: 065
  5. VINCRISTINE [Suspect]
     Indication: B-CELL LYMPHOMA
     Route: 065

REACTIONS (5)
  - NEUTROPENIA [None]
  - RHINITIS ALLERGIC [None]
  - INFUSION RELATED REACTION [None]
  - INFECTION [None]
  - NEUROPATHY PERIPHERAL [None]
